FAERS Safety Report 7639902-1 (Version None)
Quarter: 2011Q3

REPORT INFORMATION
  Report Type: 
  Country: None (occurrence: None)
  Receive Date: 20110727
  Receipt Date: 20110721
  Transmission Date: 20111222
  Serious: Yes (Death, Hospitalization, Other)
  Sender: FDA-Public Use
  Company Number: FR-PFIZER INC-2011165346

PATIENT
  Age: 77 Year
  Sex: Male

DRUGS (5)
  1. PREVISCAN [Suspect]
     Dosage: 25 MG, 1X/DAY
     Route: 048
     Dates: start: 20110617, end: 20110622
  2. ACETAMINOPHEN [Concomitant]
     Dosage: UNK
     Route: 048
  3. SULFASALAZINE [Suspect]
     Dosage: 1 G, 2X/DAY
     Route: 048
     Dates: start: 20110610, end: 20110621
  4. METHOTREXATE [Concomitant]
     Indication: RHEUMATOID ARTHRITIS
     Dosage: UNK
     Dates: end: 20110610
  5. PREDNISONE [Concomitant]
     Dosage: 5 MG, 1X/DAY
     Route: 048

REACTIONS (1)
  - ACUTE GENERALISED EXANTHEMATOUS PUSTULOSIS [None]
